FAERS Safety Report 4417974-5 (Version None)
Quarter: 2004Q2

REPORT INFORMATION
  Report Type: 
  Country: None (occurrence: None)
  Receive Date: 20040622
  Receipt Date: 20031202
  Transmission Date: 20050107
  Serious: Yes (Other)
  Sender: FDA-Public Use
  Company Number: 353060

PATIENT
  Sex: Female

DRUGS (1)
  1. XELODA [Suspect]
     Dosage: 4500 MG DAILY 2 PER DAY ORAL
     Route: 048
     Dates: start: 20031002, end: 20031027

REACTIONS (1)
  - PRURITUS [None]
